FAERS Safety Report 7360207-0 (Version None)
Quarter: 2011Q1

REPORT INFORMATION
  Report Type: 
  Country: None (occurrence: None)
  Receive Date: 20110307
  Receipt Date: 20110225
  Transmission Date: 20110831
  Serious: Yes (Other)
  Sender: FDA-Public Use
  Company Number: NL-GDP-11410101

PATIENT
  Sex: Male

DRUGS (6)
  1. EFRACEA (DOXYCYCLINE) (40 MG, 40 MG) [Suspect]
     Indication: ACNE
     Dosage: (40 MG QD, ORAL) (40 MG QD ORAL)
     Route: 048
     Dates: start: 20110215
  2. EFRACEA (DOXYCYCLINE) (40 MG, 40 MG) [Suspect]
     Indication: ACNE
     Dosage: (40 MG QD, ORAL) (40 MG QD ORAL)
     Route: 048
     Dates: start: 20110211, end: 20110212
  3. METFORMINE [Concomitant]
  4. SIMVASTATIN [Concomitant]
  5. PERINDOPRIL [Concomitant]
  6. GLIMEPIRIDE [Concomitant]

REACTIONS (1)
  - HYPOGLYCAEMIA [None]
